FAERS Safety Report 8231443-6 (Version None)
Quarter: 2012Q1

REPORT INFORMATION
  Report Type: 
  Country: None (occurrence: None)
  Receive Date: 20120323
  Receipt Date: 20120320
  Transmission Date: 20120608
  Serious: Yes (Other)
  Sender: FDA-Public Use
  Company Number: AU-PFIZER INC-2012038607

PATIENT
  Age: 42 Year
  Sex: Female

DRUGS (4)
  1. BUPRENORPHINE [Concomitant]
     Indication: PAIN
     Dosage: 10 MG, WEEKLY
  2. VARENICLINE TARTRATE [Suspect]
     Indication: SMOKING CESSATION THERAPY
     Dosage: 0.5MG DAILY
     Route: 048
  3. ACETAMINOPHEN W/ CODEINE [Concomitant]
     Indication: PAIN
     Dosage: TWO TABLETS THREE TIMES A DAY AS NEEDED
     Route: 048
  4. VALIUM [Concomitant]
     Indication: ANXIETY
     Dosage: 2MG, 1-2 AT NIGHT AS NEEDED
     Route: 048

REACTIONS (6)
  - SLEEP DISORDER [None]
  - NAUSEA [None]
  - DEPRESSION SUICIDAL [None]
  - DYSPHORIA [None]
  - DYSPNOEA [None]
  - CONSTIPATION [None]
